FAERS Safety Report 9302564 (Version 1)
Quarter: 2013Q2

REPORT INFORMATION
  Report Type: Spontaneous
  Country: GB (occurrence: None)
  Receive Date: 20130517
  Receipt Date: 20130517
  Transmission Date: 20140414
  Serious: Yes (Hospitalization)
  Sender: FDA-Public Use
  Company Number: AUR-APL-2013-04051

PATIENT
  Age: 34 Year
  Sex: Male

DRUGS (3)
  1. CITALOPRAM (CITALOPRAM) [Suspect]
     Indication: DEPRESSED MOOD
     Route: 048
     Dates: start: 20121113, end: 20121213
  2. BUSPIRONE [Suspect]
     Indication: ANXIETY
     Route: 062
     Dates: start: 20121113
  3. CLOZARIL (CLOZAPINE) [Suspect]
     Indication: SCHIZOPHRENIA
     Route: 048
     Dates: start: 20011218, end: 20130123

REACTIONS (1)
  - Priapism [None]
